FAERS Safety Report 5035378-1 (Version None)
Quarter: 2006Q2

REPORT INFORMATION
  Report Type: 
  Country: None (occurrence: None)
  Receive Date: 20060627
  Receipt Date: 20060616
  Transmission Date: 20061013
  Serious: Yes (Other)
  Sender: FDA-Public Use
  Company Number: US-MERCK-0606USA02978

PATIENT
  Age: 54 Year
  Sex: Female

DRUGS (5)
  1. HYDROCHLOROTHIAZIDE [Suspect]
     Indication: HEPATITIS CHRONIC ACTIVE
     Route: 048
  2. PREDNISONE [Concomitant]
     Route: 065
  3. PREDNISONE [Concomitant]
     Route: 065
  4. SPIRONOLACTONE [Concomitant]
     Route: 065
  5. POTASSIUM CHLORIDE [Concomitant]
     Route: 065

REACTIONS (2)
  - CRYPTOCOCCOSIS [None]
  - MENINGEAL DISORDER [None]
